FAERS Safety Report 11416231 (Version 1)
Quarter: 2015Q3

REPORT INFORMATION
  Report Type: Spontaneous
  Country: US (occurrence: US)
  Receive Date: 20150825
  Receipt Date: 20150825
  Transmission Date: 20151125
  Serious: No
  Sender: FDA-Public Use
  Company Number: US-PFIZER INC-2015278657

PATIENT
  Age: 54 Year
  Sex: Female

DRUGS (2)
  1. ADDERALL [Concomitant]
     Active Substance: AMPHETAMINE ASPARTATE\AMPHETAMINE SULFATE\DEXTROAMPHETAMINE SACCHARATE\DEXTROAMPHETAMINE SULFATE
     Dosage: UNK
  2. EFFEXOR XR [Suspect]
     Active Substance: VENLAFAXINE HYDROCHLORIDE
     Indication: DEPRESSION
     Dosage: 150MG IN THE MORNING, 75MG IN THE AFTERNOON AND 37.5MG IN THE EVENING

REACTIONS (5)
  - Pre-existing condition improved [Unknown]
  - Decreased appetite [Unknown]
  - Dizziness [Unknown]
  - Therapeutic response unexpected [Unknown]
  - Drug ineffective [Unknown]
